FAERS Safety Report 12209690 (Version 2)
Quarter: 2016Q2

REPORT INFORMATION
  Report Type: Spontaneous
  Country: JP (occurrence: JP)
  Receive Date: 20160325
  Receipt Date: 20160420
  Transmission Date: 20160815
  Serious: Yes (Hospitalization, Other)
  Sender: FDA-Public Use
  Company Number: JP-ROCHE-1724121

PATIENT
  Age: 3 Year
  Sex: Male
  Weight: 12.9 kg

DRUGS (6)
  1. CARBOCISTEINE [Concomitant]
     Active Substance: CARBOCYSTEINE
     Indication: INFLUENZA
     Route: 048
     Dates: start: 20160223
  2. ANHIBA [Concomitant]
     Active Substance: ACETAMINOPHEN
     Indication: INFLUENZA
     Dosage: UNCERTAIN DOSAGE AND SINGLE USE
     Route: 054
     Dates: start: 20160223
  3. ASVERIN (TIPEPIDINE HIBENZATE) [Concomitant]
     Active Substance: TIPEPIDINE HIBENZATE
     Indication: INFLUENZA
     Route: 048
     Dates: start: 20160223
  4. TAMIFLU [Suspect]
     Active Substance: OSELTAMIVIR PHOSPHATE
     Indication: INFLUENZA
     Dosage: DOSAGE IS UNCERTAIN.
     Route: 048
     Dates: start: 20160223, end: 20160223
  5. HOKUNALIN [Concomitant]
     Active Substance: TULOBUTEROL
     Indication: INFLUENZA
     Route: 062
     Dates: start: 20160223
  6. LAC-B [Concomitant]
     Active Substance: BIFIDOBACTERIUM SPP.
     Indication: INFLUENZA
     Route: 048
     Dates: start: 20160223

REACTIONS (2)
  - Erythema multiforme [Recovered/Resolved]
  - Dyspnoea [Recovered/Resolved]

NARRATIVE: CASE EVENT DATE: 20160223
